FAERS Safety Report 4668450-6 (Version None)
Quarter: 2005Q2

REPORT INFORMATION
  Report Type: 
  Country: None (occurrence: None)
  Receive Date: 20050518
  Receipt Date: 20050425
  Transmission Date: 20051028
  Serious: Yes (Other)
  Sender: FDA-Public Use
  Company Number: B0379827A

PATIENT
  Sex: Male

DRUGS (3)
  1. CHLORPROMAZINE HCL [Suspect]
  2. HALOPERIDOL [Suspect]
  3. VALPROATE SODIUM [Suspect]
     Indication: BIPOLAR DISORDER

REACTIONS (2)
  - DIABETIC KETOACIDOSIS [None]
  - PANCREATITIS ACUTE [None]
